FAERS Safety Report 21515960 (Version 1)
Quarter: 2022Q4

REPORT INFORMATION
  Report Type: Spontaneous
  Country: CN (occurrence: CN)
  Receive Date: 20221027
  Receipt Date: 20221027
  Transmission Date: 20230113
  Serious: Yes (Hospitalization, Other)
  Sender: FDA-Public Use
  Company Number: CN-ASTELLAS PHARMA EUROPE B.V.-2022US037611

PATIENT
  Age: 89 Year
  Sex: Male

DRUGS (5)
  1. HARNAL [Suspect]
     Active Substance: TAMSULOSIN HYDROCHLORIDE
     Indication: Post micturition dribble
     Dosage: 0.2 MG, UNKNOWN FREQ.
     Route: 048
     Dates: start: 20221011, end: 20221011
  2. HARNAL [Suspect]
     Active Substance: TAMSULOSIN HYDROCHLORIDE
     Indication: Pollakiuria
  3. HARNAL [Suspect]
     Active Substance: TAMSULOSIN HYDROCHLORIDE
     Indication: Dysuria
  4. FINASTERIDE [Suspect]
     Active Substance: FINASTERIDE
     Indication: Product used for unknown indication
     Dosage: UNK UNK, UNKNOWN FREQ.
     Route: 048
  5. METOPROLOL [Concomitant]
     Active Substance: METOPROLOL
     Indication: Product used for unknown indication
     Dosage: 0.5 DF, UNKNOWN FREQ.
     Route: 065
     Dates: start: 202208

REACTIONS (7)
  - Crying [Unknown]
  - Drooling [Unknown]
  - Shock [Unknown]
  - Depressed level of consciousness [Unknown]
  - Loss of consciousness [Unknown]
  - Syncope [Unknown]
  - Visual impairment [Unknown]

NARRATIVE: CASE EVENT DATE: 20221011
